FAERS Safety Report 10733141 (Version 1)
Quarter: 2015Q1

REPORT INFORMATION
  Report Type: Spontaneous
  Country: NL (occurrence: None)
  Receive Date: 20150120
  Receipt Date: 20150120
  Transmission Date: 20150721
  Serious: Yes (Hospitalization)
  Sender: FDA-Public Use
  Company Number: 2015NL000350

PATIENT
  Age: 87 Year
  Sex: Male

DRUGS (1)
  1. ELIGARD [Suspect]
     Active Substance: LEUPROLIDE ACETATE
     Indication: PROSTATE CANCER
     Dosage: ONCE EVERY 3 MONTHS, SUBCUTANEOUS
     Route: 058

REACTIONS (2)
  - Bradycardia [None]
  - Pneumonia [None]

NARRATIVE: CASE EVENT DATE: 20141021
